FAERS Safety Report 5716437-4 (Version None)
Quarter: 2008Q2

REPORT INFORMATION
  Report Type: 
  Country: None (occurrence: None)
  Receive Date: 20080424
  Receipt Date: 20080418
  Transmission Date: 20081010
  Serious: Yes (Hospitalization, Other)
  Sender: FDA-Public Use
  Company Number: RO-AVENTIS-200813130GDDC

PATIENT
  Age: 49 Year
  Sex: Female
  Weight: 53 kg

DRUGS (2)
  1. ARAVA [Suspect]
     Indication: RHEUMATOID ARTHRITIS
     Route: 048
     Dates: start: 20010101, end: 20060401
  2. NSAID'S [Concomitant]
     Dosage: DOSE: UNK

REACTIONS (8)
  - DYSPNOEA EXERTIONAL [None]
  - EOSINOPHILIA [None]
  - HYPOKINESIA [None]
  - INTRACARDIAC THROMBUS [None]
  - JUGULAR VEIN DISTENSION [None]
  - OEDEMA PERIPHERAL [None]
  - RALES [None]
  - RESTRICTIVE CARDIOMYOPATHY [None]
